FAERS Safety Report 5802564-X (Version None)
Quarter: 2008Q3

REPORT INFORMATION
  Report Type: 
  Country: None (occurrence: None)
  Receive Date: 20080708
  Receipt Date: 20080702
  Transmission Date: 20090109
  Serious: Yes (Hospitalization)
  Sender: FDA-Public Use
  Company Number: PHHY2008IT12904

PATIENT
  Sex: Female

DRUGS (2)
  1. TOLEP [Suspect]
     Indication: TEMPORAL LOBE EPILEPSY
     Dosage: UNK
     Route: 048
     Dates: start: 20071127, end: 20080622
  2. GARDENALE [Concomitant]
     Indication: TEMPORAL LOBE EPILEPSY
     Dosage: UNK

REACTIONS (5)
  - CLONUS [None]
  - ELECTROENCEPHALOGRAM ABNORMAL [None]
  - HYPONATRAEMIA [None]
  - PLEURISY [None]
  - STATUS EPILEPTICUS [None]
